FAERS Safety Report 7651551-8 (Version None)
Quarter: 2011Q3

REPORT INFORMATION
  Report Type: 
  Country: None (occurrence: None)
  Receive Date: 20110802
  Receipt Date: 20110729
  Transmission Date: 20111222
  Serious: Yes (Death)
  Sender: FDA-Public Use
  Company Number: PHHO2011BF12994

PATIENT
  Sex: Female

DRUGS (1)
  1. CGP 56697 [Suspect]
     Indication: MALARIA
     Dosage: 20/120 MG, BID
     Route: 048
     Dates: start: 20110719

REACTIONS (1)
  - SUDDEN DEATH [None]
